FAERS Safety Report 20457011 (Version 1)
Quarter: 2022Q1

REPORT INFORMATION
  Report Type: Spontaneous
  Country: US (occurrence: US)
  Receive Date: 20220210
  Receipt Date: 20220210
  Transmission Date: 20220424
  Serious: No
  Sender: FDA-Public Use
  Company Number: US-PERRIGO-21US006665

PATIENT
  Sex: Female
  Weight: 99.32 kg

DRUGS (1)
  1. CETIRIZINE HYDROCHLORIDE [Suspect]
     Active Substance: CETIRIZINE HYDROCHLORIDE
     Indication: Hypersensitivity
     Dosage: 10 MG, QD
     Route: 048
     Dates: end: 202101

REACTIONS (3)
  - Paranasal sinus hyposecretion [Recovered/Resolved]
  - Dry eye [Recovered/Resolved]
  - Product administered to patient of inappropriate age [Recovered/Resolved]
